FAERS Safety Report 10235795 (Version 5)
Quarter: 2014Q4

REPORT INFORMATION
  Report Type: Spontaneous
  Country: US (occurrence: US)
  Receive Date: 20140613
  Receipt Date: 20141029
  Transmission Date: 20150528
  Serious: No
  Sender: FDA-Public Use
  Company Number: US-PFIZER INC-2014159180

PATIENT
  Age: 75 Year
  Sex: Male
  Weight: 86.62 kg

DRUGS (6)
  1. SYNTHROID [Concomitant]
     Active Substance: LEVOTHYROXINE SODIUM
     Dosage: UNK
  2. COMPAZINE [Concomitant]
     Active Substance: PROCHLORPERAZINE MALEATE
     Indication: NAUSEA
     Dosage: UNK
     Route: 042
  3. MARINOL [Concomitant]
     Active Substance: DRONABINOL
     Dosage: UNK
  4. IMODIUM [Concomitant]
     Active Substance: LOPERAMIDE HYDROCHLORIDE
     Dosage: UNK, AS NEEDED
  5. SUTENT [Suspect]
     Active Substance: SUNITINIB MALATE
     Indication: METASTATIC RENAL CELL CARCINOMA
     Dosage: 50 MG, CYCLIC (28 DAYS ON AND 14 DAYS OFF)
  6. CABERGOLINE. [Concomitant]
     Active Substance: CABERGOLINE
     Indication: HYPOPITUITARISM
     Dosage: UNK

REACTIONS (21)
  - Ill-defined disorder [Unknown]
  - Dizziness postural [Unknown]
  - Eye swelling [Unknown]
  - Yellow skin [Unknown]
  - Rash macular [Unknown]
  - Anal pruritus [Unknown]
  - Stomatitis [Unknown]
  - Disease progression [Unknown]
  - Hair colour changes [Unknown]
  - Pain in extremity [Unknown]
  - Limb discomfort [Unknown]
  - Urticaria [Unknown]
  - Dysgeusia [Unknown]
  - Red blood cell count decreased [Unknown]
  - Eyelash discolouration [Unknown]
  - Metastatic renal cell carcinoma [Unknown]
  - White blood cell count decreased [Unknown]
  - Perianal erythema [Unknown]
  - Platelet count decreased [Unknown]
  - Spontaneous penile erection [Unknown]
  - Blood blister [Unknown]
